FAERS Safety Report 10551338 (Version 1)
Quarter: 2014Q4

REPORT INFORMATION
  Report Type: Spontaneous
  Country: US (occurrence: US)
  Receive Date: 20141029
  Receipt Date: 20141029
  Transmission Date: 20150529
  Serious: Yes (Hospitalization, Other)
  Sender: FDA-Public Use
  Company Number: US-ELI_LILLY_AND_COMPANY-US201410008101

PATIENT
  Age: 35 Year
  Sex: Male

DRUGS (4)
  1. HUMALOG [Suspect]
     Active Substance: INSULIN LISPRO
     Indication: TYPE 2 DIABETES MELLITUS
     Dosage: UNK, PRN
     Route: 065
     Dates: start: 1982
  2. ASPIRIN. [Concomitant]
     Active Substance: ASPIRIN
  3. PRILOSEC [Concomitant]
     Active Substance: OMEPRAZOLE MAGNESIUM
     Dosage: UNK
     Dates: start: 1992
  4. HUMULIN N [Suspect]
     Active Substance: INSULIN HUMAN
     Indication: TYPE 2 DIABETES MELLITUS
     Dosage: 43 U, EACH MORNING
     Route: 065
     Dates: start: 1985

REACTIONS (12)
  - Impaired gastric emptying [Unknown]
  - Blindness [Not Recovered/Not Resolved]
  - Hip fracture [Unknown]
  - Humerus fracture [Unknown]
  - Retinal detachment [Unknown]
  - Lower limb fracture [Unknown]
  - Cardiac disorder [Unknown]
  - Hypertension [Unknown]
  - Femur fracture [Unknown]
  - Chest pain [Unknown]
  - Chest pain [Unknown]
  - Drug effect delayed [Unknown]

NARRATIVE: CASE EVENT DATE: 198311
